FAERS Safety Report 4930496-8 (Version None)
Quarter: 2006Q1

REPORT INFORMATION
  Report Type: 
  Country: None (occurrence: None)
  Receive Date: 20060302
  Receipt Date: 20050621
  Transmission Date: 20060701
  Serious: Yes (Hospitalization, Other)
  Sender: FDA-Public Use
  Company Number: US-MERCK-0506USA03190

PATIENT
  Age: 77 Year
  Sex: Female
  Weight: 59 kg

DRUGS (4)
  1. VIOXX [Suspect]
     Indication: ARTHRITIS
     Route: 048
     Dates: start: 19991101, end: 20041001
  2. VIOXX [Suspect]
     Route: 048
     Dates: start: 19991101, end: 20041001
  3. VIOXX [Suspect]
     Indication: PAIN
     Route: 048
     Dates: start: 19991101, end: 20041001
  4. VIOXX [Suspect]
     Route: 048
     Dates: start: 19991101, end: 20041001

REACTIONS (15)
  - ABDOMINAL PAIN UPPER [None]
  - CEREBROVASCULAR ACCIDENT [None]
  - CONSTIPATION [None]
  - DEHYDRATION [None]
  - DIZZINESS [None]
  - EATING DISORDER [None]
  - FALL [None]
  - GASTRIC DISORDER [None]
  - GASTRIC ULCER [None]
  - GASTROINTESTINAL HAEMORRHAGE [None]
  - ISCHAEMIC STROKE [None]
  - OESOPHAGEAL DISORDER [None]
  - OESOPHAGEAL OBSTRUCTION [None]
  - TRANSIENT ISCHAEMIC ATTACK [None]
  - VOMITING [None]
